FAERS Safety Report 7288012-4 (Version None)
Quarter: 2011Q1

REPORT INFORMATION
  Report Type: 
  Country: None (occurrence: None)
  Receive Date: 20110211
  Receipt Date: 20110131
  Transmission Date: 20110831
  Serious: Yes (Hospitalization)
  Sender: FDA-Public Use
  Company Number: PHHY2011FR08938

PATIENT
  Sex: Male

DRUGS (14)
  1. ACYCLOVIR [Suspect]
     Indication: ENCEPHALITIS
     Dosage: 1350 MG, TID (EACH DOSE ON 3 HOURS)
     Dates: start: 20101107
  2. TAREG [Suspect]
     Dosage: 80 MG DAILY
  3. SERETIDE [Concomitant]
     Dosage: 500 MG, 2 PUFFS DAILY
  4. ACYCLOVIR [Suspect]
     Dosage: 1250 MG, TID
     Dates: start: 20101108
  5. ACYCLOVIR [Suspect]
     Dosage: 900 MG, TID
     Dates: start: 20101109, end: 20101112
  6. SPIRIVA [Concomitant]
     Dosage: 1 DF DAILY
  7. AMOXICILLIN [Suspect]
     Indication: ENCEPHALITIS
     Dosage: 6 G DAILY
     Route: 042
     Dates: start: 20101108, end: 20101111
  8. AMOXICILLIN [Suspect]
     Dosage: 4.5 G DAILY
     Route: 042
     Dates: start: 20101112, end: 20101130
  9. PREVISCAN [Concomitant]
     Dosage: 1 DF DAILY
  10. XYZAL [Concomitant]
     Dosage: 1 DF DAILY
  11. ACETAMINOPHEN [Concomitant]
  12. CORDARONE [Concomitant]
     Dosage: 200 MG DAILY
  13. DIGOXIN [Concomitant]
     Dosage: 1 DF DAILY
  14. ZOPICLONE [Concomitant]
     Dosage: 1 DF DAILY

REACTIONS (11)
  - RENAL FAILURE ACUTE [None]
  - PYREXIA [None]
  - GAMMA-GLUTAMYLTRANSFERASE INCREASED [None]
  - CYTOLYTIC HEPATITIS [None]
  - BLOOD CREATININE INCREASED [None]
  - CREATININE RENAL CLEARANCE DECREASED [None]
  - LISTERIOSIS [None]
  - ENCEPHALITIS [None]
  - CONFUSIONAL STATE [None]
  - C-REACTIVE PROTEIN INCREASED [None]
  - ASPARTATE AMINOTRANSFERASE INCREASED [None]
